FAERS Safety Report 4983797-1 (Version None)
Quarter: 2006Q2

REPORT INFORMATION
  Report Type: 
  Country: None (occurrence: None)
  Receive Date: 20060426
  Receipt Date: 20060411
  Transmission Date: 20061013
  Serious: Yes (Hospitalization)
  Sender: FDA-Public Use
  Company Number: IT-ABBOTT-06P-083-0330698-00

PATIENT
  Sex: Female
  Weight: 66 kg

DRUGS (4)
  1. HUMIRA [Suspect]
     Indication: RHEUMATOID ARTHRITIS
     Route: 058
     Dates: start: 20051206, end: 20060421
  2. PREDNISONE [Concomitant]
     Indication: RHEUMATOID ARTHRITIS
  3. VOLTAREN [Concomitant]
     Indication: RHEUMATOID ARTHRITIS
     Dates: end: 20060224
  4. OMEPRAZOLE [Concomitant]
     Indication: RHEUMATOID ARTHRITIS

REACTIONS (7)
  - ANAEMIA [None]
  - ARTHRALGIA [None]
  - ASTHENIA [None]
  - GASTROINTESTINAL HAEMORRHAGE [None]
  - PALLOR [None]
  - PEPTIC ULCER [None]
  - RECTAL HAEMORRHAGE [None]
